FAERS Safety Report 15179992 (Version 1)
Quarter: 2018Q3

REPORT INFORMATION
  Report Type: Spontaneous
  Country: US (occurrence: US)
  Receive Date: 20180723
  Receipt Date: 20180723
  Transmission Date: 20181010
  Serious: No
  Sender: FDA-Public Use
  Company Number: US-PFIZER INC-2018290919

PATIENT

DRUGS (2)
  1. ADVIL [Suspect]
     Active Substance: IBUPROFEN
     Indication: BURNING SENSATION
  2. ADVIL [Suspect]
     Active Substance: IBUPROFEN
     Indication: MIGRAINE
     Dosage: UNK

REACTIONS (6)
  - Fatigue [Unknown]
  - Migraine [Unknown]
  - Dizziness [Unknown]
  - Disease progression [Unknown]
  - Intentional overdose [Unknown]
  - Burning sensation [Unknown]
